FAERS Safety Report 14509892 (Version 1)
Quarter: 2018Q1

REPORT INFORMATION
  Report Type: Spontaneous
  Country: US (occurrence: US)
  Receive Date: 20180209
  Receipt Date: 20180209
  Transmission Date: 20180509
  Serious: No
  Sender: FDA-Public Use
  Company Number: US-PFIZER INC-2018054724

PATIENT
  Age: 32 Year
  Sex: Female

DRUGS (11)
  1. GABAPENTIN. [Suspect]
     Active Substance: GABAPENTIN
     Indication: FIBROMYALGIA
  2. AMITREX [Concomitant]
     Active Substance: AMISULPRIDE
     Indication: HEADACHE
     Dosage: UNK, AS NEEDED
  3. GABAPENTIN. [Suspect]
     Active Substance: GABAPENTIN
     Indication: TENSION HEADACHE
     Dosage: 800MG TABLETS THREE TIMES A DAY
     Dates: start: 2015
  4. GABAPENTIN. [Suspect]
     Active Substance: GABAPENTIN
     Indication: THORACIC OUTLET SYNDROME
     Dosage: 3600 MG, DAILY
  5. GABAPENTIN. [Suspect]
     Active Substance: GABAPENTIN
     Indication: PARAESTHESIA
  6. GABAPENTIN. [Suspect]
     Active Substance: GABAPENTIN
     Indication: SLEEP DISORDER
  7. TOPAMAX [Concomitant]
     Active Substance: TOPIRAMATE
     Dosage: 200MG TABLET TWICE DAILY BY MOUTH
     Route: 048
  8. EFFEXOR [Concomitant]
     Active Substance: VENLAFAXINE HYDROCHLORIDE
     Indication: MIGRAINE
     Dosage: 150MG CAPSULES BY MOUTH ONCE DAILY
     Route: 048
  9. ZOFRAN [Concomitant]
     Active Substance: ONDANSETRON HYDROCHLORIDE
     Indication: NAUSEA
     Dosage: UNK, AS NEEDED
  10. TOPAMAX [Concomitant]
     Active Substance: TOPIRAMATE
     Indication: TENSION HEADACHE
     Dosage: 25 MG, UNK
  11. TIZANIDINE. [Concomitant]
     Active Substance: TIZANIDINE
     Indication: TENSION HEADACHE
     Dosage: 2MG TABLETS BY MOUTH 2 TABLETS TWICE DAILY BY MOUTH
     Route: 048

REACTIONS (3)
  - Condition aggravated [Unknown]
  - Drug ineffective for unapproved indication [Unknown]
  - Fibromyalgia [Unknown]

NARRATIVE: CASE EVENT DATE: 2016
